FAERS Safety Report 13401901 (Version 3)
Quarter: 2017Q3

REPORT INFORMATION
  Report Type: Report from Study
  Country: CA (occurrence: CA)
  Receive Date: 20170404
  Receipt Date: 20170922
  Transmission Date: 20171127
  Serious: Yes (Other)
  Sender: FDA-Public Use
  Company Number: CA-AMGEN-CANSL2017048353

PATIENT
  Age: 72 Year
  Sex: Female

DRUGS (2)
  1. VITAMIN D [Concomitant]
     Active Substance: CHOLECALCIFEROL
     Dosage: UNK
  2. PROLIA [Suspect]
     Active Substance: DENOSUMAB
     Indication: OSTEOPOROSIS
     Dosage: UNK
     Route: 065
     Dates: start: 20170130

REACTIONS (11)
  - Blood cholesterol increased [Unknown]
  - Arthralgia [Unknown]
  - Muscle spasms [Not Recovered/Not Resolved]
  - Constipation [Unknown]
  - Pain [Recovered/Resolved]
  - Hair disorder [Unknown]
  - Loss of personal independence in daily activities [Unknown]
  - Mole excision [Unknown]
  - Epistaxis [Unknown]
  - Skin cancer [Unknown]
  - Nasal operation [Unknown]

NARRATIVE: CASE EVENT DATE: 2017
